FAERS Safety Report 4325149-3 (Version None)
Quarter: 2004Q1

REPORT INFORMATION
  Report Type: 
  Country: None (occurrence: None)
  Receive Date: 20040324
  Receipt Date: 20040225
  Transmission Date: 20041129
  Serious: No
  Sender: FDA-Public Use
  Company Number: GB-SHR-04-021695

PATIENT
  Sex: Female

DRUGS (1)
  1. LEVONELLE-2 (LEVONORGESTREL) COATED TABLET [Suspect]
     Dosage: 2 TAB(S), ORAL
     Route: 048
     Dates: start: 20010301, end: 20010301

REACTIONS (1)
  - OVARIAN CYST [None]
